FAERS Safety Report 15573310 (Version 6)
Quarter: 2021Q2

REPORT INFORMATION
  Report Type: Spontaneous
  Country: IT (occurrence: IT)
  Receive Date: 20181101
  Receipt Date: 20210506
  Transmission Date: 20210716
  Serious: Yes (Hospitalization)
  Sender: FDA-Public Use
  Company Number: IT-BIOGEN-2018BI00653308

PATIENT
  Age: 4 Year
  Sex: Male

DRUGS (4)
  1. ADISTEROL [Concomitant]
     Indication: PRODUCT USED FOR UNKNOWN INDICATION
     Dosage: 4 DROPS A DAY
     Route: 050
  2. ADISTEROL [Concomitant]
     Dosage: 10000 IU/ML + 10000 IU/ML ORAL DROPS, SOLUTION
     Route: 050
  3. SPINRAZA [Suspect]
     Active Substance: NUSINERSEN
     Indication: SPINAL MUSCULAR ATROPHY
     Route: 050
     Dates: start: 20170618, end: 20180622
  4. BIOKCIT (POTASSIUM CITRATE) [Concomitant]
     Indication: PRODUCT USED FOR UNKNOWN INDICATION
     Dosage: HALF SACHET IN THE MORNING AND IN THE EVENING
     Route: 050

REACTIONS (1)
  - Ewing^s sarcoma [Not Recovered/Not Resolved]

NARRATIVE: CASE EVENT DATE: 20180831
